FAERS Safety Report 23259815 (Version 3)
Quarter: 2024Q1

REPORT INFORMATION
  Report Type: Spontaneous
  Country: BR (occurrence: BR)
  Receive Date: 20231204
  Receipt Date: 20240130
  Transmission Date: 20240410
  Serious: Yes (Other)
  Sender: FDA-Public Use
  Company Number: BR-ABBVIE-5394262

PATIENT
  Sex: Female
  Weight: 62 kg

DRUGS (7)
  1. BOTOX [Suspect]
     Active Substance: ONABOTULINUMTOXINA
     Indication: Skin wrinkling
     Dosage: TIME INTERVAL: AS NECESSARY: EVERY 1 DAYS?FORM STRENGTH : 50 UNITS
     Route: 023
     Dates: start: 20230503, end: 20230503
  2. CEPHALEXIN [Concomitant]
     Active Substance: CEPHALEXIN
     Indication: Product used for unknown indication
     Dosage: FORM STRENGTH : 500 MG, 1 CAPSULE, ORALLY, EVERY 6 HOURS FOR 3 DAYS
     Route: 048
  3. PREDNISOLONE [Concomitant]
     Active Substance: PREDNISOLONE
     Indication: Product used for unknown indication
     Dosage: FORM STRENGTH :  40 MG, 1 TABLET, ORALLY, IN THE MORNING FOR TWO DAYS
     Route: 048
  4. PREDNISOLONE [Concomitant]
     Active Substance: PREDNISOLONE
     Indication: Product used for unknown indication
     Dosage: FORM STRENGTH : 40 MG, TABLET, TAKE 1 TABLET, ORALLY, IN THE MORNING FOR 2 DAYS
     Route: 048
  5. CIPROFLOXACIN [Concomitant]
     Active Substance: CIPROFLOXACIN
     Indication: Product used for unknown indication
     Dosage: FORM STRENGTH : 500MG, COATED TABLET, TAKE 1 TABLET, ORALLY, EVERY 12 HOURS FOR 7 DAYS;
     Route: 048
  6. PROVANCE [Concomitant]
     Indication: Product used for unknown indication
     Dosage: CHEWABLE TABLET, TAKE 1 TABLET, ORALLY, AFTER WAKING UP FOR 10 DAYS;
     Route: 048
  7. PANTOPRAZOLE [Concomitant]
     Active Substance: PANTOPRAZOLE
     Indication: Product used for unknown indication
     Dosage: FORM STRENGTH : 40MG, COATED TABLET, TAKE 1 TABLET, ORALLY, BEFORE BED.
     Route: 048

REACTIONS (8)
  - Nodule [Not Recovered/Not Resolved]
  - Infection [Unknown]
  - Product use issue [Recovered/Resolved]
  - Multiple use of single-use product [Unknown]
  - Deformity [Unknown]
  - Physical deconditioning [Unknown]
  - Emotional disorder [Unknown]
  - Drug ineffective [Unknown]

NARRATIVE: CASE EVENT DATE: 20230101
